FAERS Safety Report 6220046-0 (Version None)
Quarter: 2009Q2

REPORT INFORMATION
  Report Type: 
  Country: None (occurrence: None)
  Receive Date: 20090609
  Receipt Date: 20090601
  Transmission Date: 20091009
  Serious: Yes (Other)
  Sender: FDA-Public Use
  Company Number: PHEH2009US05522

PATIENT
  Sex: Female

DRUGS (2)
  1. RECLAST [Suspect]
     Dosage: UNK
     Dates: start: 20081001
  2. ATENOLOL [Concomitant]

REACTIONS (5)
  - DRY SKIN [None]
  - HERPES ZOSTER [None]
  - PAIN [None]
  - POSTURE ABNORMAL [None]
  - RASH GENERALISED [None]
